FAERS Safety Report 14529053 (Version 1)
Quarter: 2018Q1

REPORT INFORMATION
  Report Type: Spontaneous
  Country: US (occurrence: US)
  Receive Date: 20180214
  Receipt Date: 20180214
  Transmission Date: 20180509
  Serious: No
  Sender: FDA-Public Use
  Company Number: US-PFIZER INC-2018065091

PATIENT
  Age: 84 Year
  Sex: Female
  Weight: 64.85 kg

DRUGS (1)
  1. HEPARIN SODIUM. [Suspect]
     Active Substance: HEPARIN SODIUM
     Indication: THROMBOLYSIS
     Dosage: UNK

REACTIONS (1)
  - Drug ineffective [Unknown]
